FAERS Safety Report 5286045-0 (Version None)
Quarter: 2007Q1

REPORT INFORMATION
  Report Type: 
  Country: None (occurrence: None)
  Receive Date: 20070329
  Receipt Date: 20070326
  Transmission Date: 20070707
  Serious: Yes (Hospitalization)
  Sender: FDA-Public Use
  Company Number: 011911

PATIENT
  Sex: Female

DRUGS (8)
  1. WARFARIN SODIUM [Suspect]
     Indication: ANTICOAGULANT THERAPY
     Dosage: 5 MG QD ORAL; 7 MG QD ORAL ; 5 MG QD ORAL
     Route: 048
     Dates: end: 20070321
  2. WARFARIN SODIUM [Suspect]
     Indication: ANTICOAGULANT THERAPY
     Dosage: 5 MG QD ORAL; 7 MG QD ORAL ; 5 MG QD ORAL
     Route: 048
  3. WARFARIN SODIUM [Suspect]
     Indication: ANTICOAGULANT THERAPY
     Dosage: 5 MG QD ORAL; 7 MG QD ORAL ; 5 MG QD ORAL
     Route: 048
     Dates: start: 20070101
  4. TRIAMTERENE AND HYDROCHLOROTHIAZIDE [Concomitant]
  5. DILTIAZEM [Concomitant]
  6. ALPRAZOLAM [Concomitant]
  7. COZAAR [Concomitant]
  8. ATORVASTATIN CALCIUM [Concomitant]

REACTIONS (2)
  - EMPHYSEMA [None]
  - INTERNATIONAL NORMALISED RATIO INCREASED [None]
